FAERS Safety Report 10691266 (Version 1)
Quarter: 2014Q4

REPORT INFORMATION
  Report Type: Spontaneous
  Country: US (occurrence: None)
  Receive Date: 20141216
  Receipt Date: 20141216
  Transmission Date: 20150529
  Serious: Yes (Hospitalization)
  Sender: FDA-Public Use
  Company Number: 2014010769

PATIENT
  Age: 79 Year
  Sex: Male
  Weight: 67.6 kg

DRUGS (7)
  1. PRAVASTATIN [Concomitant]
     Active Substance: PRAVASTATIN\PRAVASTATIN SODIUM
  2. NEUPRO [Suspect]
     Active Substance: ROTIGOTINE
     Indication: PARKINSON^S DISEASE
     Route: 062
     Dates: start: 2014, end: 201408
  3. PLAVIX (CLOPIDOGREL BISULFATE) [Concomitant]
  4. PANTOPRAZOLE (PANTOPRAZOLE) [Concomitant]
     Active Substance: PANTOPRAZOLE SODIUM
  5. CARBIDOPA LEVODOPA (CARBIDOPA, LEVODOPA) [Concomitant]
  6. DUTASTERIDE (DUTASTERIDE) [Concomitant]
  7. TRAZODONE [Concomitant]
     Active Substance: TRAZODONE HYDROCHLORIDE

REACTIONS (4)
  - Overdose [None]
  - Hallucination [None]
  - Confusional state [None]
  - Off label use [None]

NARRATIVE: CASE EVENT DATE: 2014
